FAERS Safety Report 5226035-7 (Version None)
Quarter: 2007Q1

REPORT INFORMATION
  Report Type: 
  Country: None (occurrence: None)
  Receive Date: 20070129
  Receipt Date: 20070126
  Transmission Date: 20070707
  Serious: No
  Sender: FDA-Public Use
  Company Number: 2007-153165-NL

PATIENT
  Age: 19 Year
  Sex: Female

DRUGS (2)
  1. ETONOGESTREL [Suspect]
     Dosage: DF
     Dates: start: 20070112
  2. ANTI-EPILEPTIC MEDICATION (UNSPECIFIED) [Concomitant]

REACTIONS (2)
  - EPILEPSY [None]
  - GRAND MAL CONVULSION [None]
